FAERS Safety Report 25998628 (Version 1)
Quarter: 2025Q4

REPORT INFORMATION
  Report Type: Spontaneous
  Country: US (occurrence: US)
  Receive Date: 20251105
  Receipt Date: 20251105
  Transmission Date: 20260117
  Serious: No
  Sender: GLENMARK
  Company Number: US-GLENMARK PHARMACEUTICALS-2024GMK094748

PATIENT

DRUGS (2)
  1. ESTRADIOL [Suspect]
     Active Substance: ESTRADIOL
     Indication: Atrophic vulvovaginitis
     Dosage: 2 DOSAGE FORM (2 IN A WEEK AFTER EVERY 14 DAYS FOR AROUND 4 MONTHS)
     Route: 067
     Dates: end: 20241008
  2. ESTRADIOL [Suspect]
     Active Substance: ESTRADIOL
     Indication: Menopause

REACTIONS (2)
  - Product label confusion [Unknown]
  - Drug ineffective [Unknown]
